FAERS Safety Report 4461889-3 (Version None)
Quarter: 2004Q3

REPORT INFORMATION
  Report Type: 
  Country: None (occurrence: None)
  Receive Date: 20040929
  Receipt Date: 20031111
  Transmission Date: 20050211
  Serious: No
  Sender: FDA-Public Use
  Company Number: US-GLAXOSMITHKLINE-A0439318A

PATIENT
  Sex: Male

DRUGS (2)
  1. SEREVENT [Suspect]
     Indication: ILL-DEFINED DISORDER
     Route: 055
  2. SEREVENT [Concomitant]
     Route: 055

REACTIONS (3)
  - APHONIA [None]
  - DRUG INEFFECTIVE [None]
  - PHARYNGOLARYNGEAL PAIN [None]
